FAERS Safety Report 5070293-9 (Version None)
Quarter: 2006Q3

REPORT INFORMATION
  Report Type: 
  Country: None (occurrence: None)
  Receive Date: 20060731
  Receipt Date: 20060720
  Transmission Date: 20061208
  Serious: Yes (Other)
  Sender: FDA-Public Use
  Company Number: 2006-07-1245

PATIENT
  Age: 66 Year
  Sex: Male

DRUGS (3)
  1. PEG-INTRON [Suspect]
     Indication: HEPATITIS C
     Dosage: 80 MCG QW SUBCUTANEOUS
     Route: 058
  2. REBETOL [Suspect]
     Indication: HEPATITIS C
     Dosage: 200 MG ORAL
     Route: 048
  3. INTERFERON INJECTABLE POWDER [Suspect]
     Indication: HEPATITIS C
     Dosage: 1 MIU TIW

REACTIONS (3)
  - FIBROSIS [None]
  - HEPATIC FUNCTION ABNORMAL [None]
  - TRANSPLANT REJECTION [None]
